FAERS Safety Report 14323818 (Version 1)
Quarter: 2017Q4

REPORT INFORMATION
  Report Type: Spontaneous
  Country: US (occurrence: US)
  Receive Date: 20171222
  Receipt Date: 20171222
  Transmission Date: 20180321
  Serious: No
  Sender: FDA-Public Use
  Company Number: None

PATIENT
  Age: 15 Year
  Sex: Male

DRUGS (1)
  1. HUMIRA [Suspect]
     Active Substance: ADALIMUMAB
     Indication: OSTEOPOROSIS
     Route: 058
     Dates: start: 20170718

REACTIONS (2)
  - Chest discomfort [None]
  - Palpitations [None]

NARRATIVE: CASE EVENT DATE: 20171123
